FAERS Safety Report 15621707 (Version 4)
Quarter: 2018Q4

REPORT INFORMATION
  Report Type: Spontaneous
  Country: BG (occurrence: BG)
  Receive Date: 20181115
  Receipt Date: 20181211
  Transmission Date: 20190205
  Serious: Yes (Death, Life-Threatening, Hospitalization, Other)
  Sender: FDA-Public Use
  Company Number: BG-CELGENEUS-BGR-20181103700

PATIENT
  Age: 52 Year
  Sex: Male

DRUGS (4)
  1. ABRAXANE [Suspect]
     Active Substance: PACLITAXEL
     Indication: NON-SMALL CELL LUNG CANCER
     Dosage: 100 MILLIGRAM/SQ. METER
     Route: 041
     Dates: start: 20180823, end: 20181018
  2. MEDI4736 [Concomitant]
     Active Substance: DURVALUMAB
     Indication: NON-SMALL CELL LUNG CANCER
     Route: 041
     Dates: start: 20180823, end: 20181011
  3. CONVULEX (VALPROATE SODIUM) [Concomitant]
     Active Substance: VALPROATE SODIUM
     Indication: SEIZURE
     Dosage: 500 MILLIGRAM
     Route: 048
     Dates: start: 20180905
  4. CARBOPLATIN. [Concomitant]
     Active Substance: CARBOPLATIN
     Indication: NON-SMALL CELL LUNG CANCER
     Dosage: 5 AUC
     Route: 041
     Dates: start: 20180823, end: 20181011

REACTIONS (3)
  - Type 1 diabetes mellitus [Not Recovered/Not Resolved]
  - Immune-mediated hepatitis [Not Recovered/Not Resolved]
  - Embolism [Fatal]

NARRATIVE: CASE EVENT DATE: 20181025
